FAERS Safety Report 16018214 (Version 1)
Quarter: 2019Q2

REPORT INFORMATION
  Report Type: Spontaneous
  Country: US (occurrence: US)
  Receive Date: 20190228
  Receipt Date: 20190228
  Transmission Date: 20190711
  Serious: Yes (Other)
  Sender: FDA-Public Use
  Company Number: None

PATIENT

DRUGS (1)
  1. BEXAROTENE. [Suspect]
     Active Substance: BEXAROTENE

REACTIONS (3)
  - Rash [None]
  - Product physical issue [None]
  - Accidental exposure to product [None]

NARRATIVE: CASE EVENT DATE: 20190226
